FAERS Safety Report 17792461 (Version 1)
Quarter: 2020Q2

REPORT INFORMATION
  Report Type: Spontaneous
  Country: US (occurrence: US)
  Receive Date: 20200515
  Receipt Date: 20200515
  Transmission Date: 20200714
  Serious: Yes (Other)
  Sender: FDA-Public Use
  Company Number: US-MYLANLABS-2020M1048854

PATIENT
  Age: 66 Year
  Sex: Male

DRUGS (10)
  1. OLANZAPINE. [Suspect]
     Active Substance: OLANZAPINE
     Indication: DISTURBANCE IN SOCIAL BEHAVIOUR
     Dosage: 2.5 MILLIGRAM, PRN
     Route: 030
  2. FINASTERIDE. [Suspect]
     Active Substance: FINASTERIDE
     Indication: URINARY RETENTION
     Route: 065
  3. OLANZAPINE. [Suspect]
     Active Substance: OLANZAPINE
     Indication: DISTURBANCE IN SOCIAL BEHAVIOUR
     Dosage: 5 MILLIGRAM, BID
     Route: 048
  4. TERAZOSIN [Suspect]
     Active Substance: TERAZOSIN HYDROCHLORIDE
     Indication: URINARY RETENTION
     Route: 065
  5. GALANTAMINE. [Suspect]
     Active Substance: GALANTAMINE
     Indication: DISTURBANCE IN SOCIAL BEHAVIOUR
     Dosage: 8 MILLIGRAM, QD
     Route: 065
  6. OLANZAPINE. [Suspect]
     Active Substance: OLANZAPINE
     Indication: AGGRESSION
  7. SERTRALINE [Concomitant]
     Active Substance: SERTRALINE HYDROCHLORIDE
     Dosage: 150 MILLIGRAM, QD
     Route: 065
  8. MIRTAZAPINE. [Concomitant]
     Active Substance: MIRTAZAPINE
     Indication: DRUG THERAPY
     Dosage: 7.5 MILLIGRAM
     Route: 065
  9. OLANZAPINE. [Suspect]
     Active Substance: OLANZAPINE
     Indication: AGGRESSION
  10. SERTRALINE [Concomitant]
     Active Substance: SERTRALINE HYDROCHLORIDE
     Indication: DISTURBANCE IN SOCIAL BEHAVIOUR
     Dosage: 100 MILLIGRAM, QD
     Route: 065

REACTIONS (2)
  - Urinary retention [Recovered/Resolved]
  - Drug ineffective [Unknown]
